FAERS Safety Report 8849481 (Version 1)
Quarter: 2012Q4

REPORT INFORMATION
  Report Type: 
  Country: US (occurrence: US)
  Receive Date: 20121019
  Receipt Date: 20121019
  Transmission Date: 20130627
  Serious: Yes (Other)
  Sender: FDA-Public Use
  Company Number: GXBR2012US002134

PATIENT
  Sex: Female
  Weight: 59.86 kg

DRUGS (7)
  1. METFORMIN [Suspect]
     Indication: DIABETES MELLITUS
     Dosage: UNK mg, UNK
  2. GLYBURIDE [Suspect]
     Indication: DIABETES MELLITUS
     Dosage: UNK mg, BID
  3. LIPITOR                                 /NET/ [Suspect]
     Indication: BLOOD CHOLESTEROL INCREASED
     Dosage: 40 mg, QD
     Dates: start: 1999
  4. ULORIC [Suspect]
     Indication: BLOOD URIC ACID INCREASED
     Dosage: UNK DF, UNK
  5. NEXIUM                             /01479302/ [Concomitant]
     Indication: GASTROOESOPHAGEAL REFLUX DISEASE
     Dosage: UNK mg, UNK
  6. METOPROLOL [Concomitant]
     Indication: CARDIAC DISORDER
     Dosage: UNK mg, UNK
  7. PERCOCET [Concomitant]
     Dosage: UNK DF, UNK

REACTIONS (3)
  - Basal cell carcinoma [Unknown]
  - Blood uric acid increased [Unknown]
  - Blood glucose increased [Unknown]
